FAERS Safety Report 4539592-0 (Version None)
Quarter: 2004Q4

REPORT INFORMATION
  Report Type: 
  Country: None (occurrence: None)
  Receive Date: 20041227
  Receipt Date: 20041227
  Transmission Date: 20050328
  Serious: Yes (Life-Threatening, Hospitalization, Disabling)
  Sender: FDA-Public Use
  Company Number: None

PATIENT

DRUGS (2)
  1. SODIUM PHOSPHATES [Suspect]
     Indication: COLONOSCOPY
  2. SODIUM PHOSPHATES [Suspect]
     Indication: PREMEDICATION

REACTIONS (3)
  - DIALYSIS [None]
  - POST PROCEDURAL COMPLICATION [None]
  - RENAL FAILURE ACUTE [None]
